FAERS Safety Report 6020591-7 (Version None)
Quarter: 2008Q4

REPORT INFORMATION
  Report Type: 
  Country: None (occurrence: None)
  Receive Date: 20081227
  Receipt Date: 20081218
  Transmission Date: 20090506
  Serious: Yes (Other)
  Sender: FDA-Public Use
  Company Number: US-JNJFOC-20081205747

PATIENT
  Sex: Male
  Weight: 86.18 kg

DRUGS (9)
  1. FENTANYL TRANSDERMAL SYSTEM [Suspect]
     Indication: CHRONIC INFLAMMATORY DEMYELINATING POLYRADICULONEUROPATHY
     Route: 062
  2. DURAGESIC-100 [Suspect]
     Indication: DRUG USE FOR UNKNOWN INDICATION
     Route: 062
  3. FENTANYL TRANSDERMAL SYSTEM [Suspect]
     Indication: CHRONIC INFLAMMATORY DEMYELINATING POLYRADICULONEUROPATHY
     Route: 062
  4. LORCET-HD [Concomitant]
     Indication: PAIN
     Dosage: DOSE: 10/650 MG AS NECESSARY
     Route: 048
  5. LYRICA [Concomitant]
     Indication: NEURALGIA
     Route: 048
  6. SOMA [Concomitant]
     Indication: MUSCLE SPASMS
     Route: 048
  7. BUSPAR [Concomitant]
     Indication: ANXIETY
     Route: 048
  8. KLONOPIN [Concomitant]
     Indication: NEUROPATHY PERIPHERAL
     Route: 048
  9. FLEXERIL [Concomitant]
     Indication: PAIN
     Route: 048

REACTIONS (11)
  - EATING DISORDER [None]
  - EYE DISCHARGE [None]
  - EYE SWELLING [None]
  - FLATULENCE [None]
  - GASTRIC DISORDER [None]
  - HOT FLUSH [None]
  - HYPERTENSION [None]
  - LEUKAEMIA [None]
  - LYMPHADENOPATHY [None]
  - NAUSEA [None]
  - PROSTATOMEGALY [None]
